FAERS Safety Report 4421337-6 (Version None)
Quarter: 2004Q3

REPORT INFORMATION
  Report Type: 
  Country: None (occurrence: None)
  Receive Date: 20040804
  Receipt Date: 20040722
  Transmission Date: 20050211
  Serious: Yes (Hospitalization, Other)
  Sender: FDA-Public Use
  Company Number: 2004050030

PATIENT
  Age: 67 Year
  Sex: Female

DRUGS (1)
  1. CARDULAR PP (DOXAZOSIN) [Suspect]
     Indication: HYPERTENSION
     Dosage: 8 MG (4 MG, 2 IN 1 D), ORAL
     Route: 048
     Dates: end: 20040630

REACTIONS (3)
  - ENTERITIS [None]
  - INTESTINAL PERFORATION [None]
  - PERITONITIS [None]
